FAERS Safety Report 9056215 (Version 2)
Quarter: 2013Q1

REPORT INFORMATION
  Report Type: Spontaneous
  Country: US (occurrence: US)
  Receive Date: 20130205
  Receipt Date: 20130314
  Transmission Date: 20140127
  Serious: Yes (Death)
  Sender: FDA-Public Use
  Company Number: US-BAYER-2013-012766

PATIENT
  Age: 68 Year
  Sex: Male

DRUGS (5)
  1. BETASERON [Suspect]
     Indication: MULTIPLE SCLEROSIS
     Dosage: 1 ML, QOD
     Route: 058
  2. IBUPROFENE [Concomitant]
  3. BACLOFEN [Concomitant]
  4. AMANTADINE [AMANTADINE] [Concomitant]
  5. ACTHAR HP [Concomitant]

REACTIONS (2)
  - Multiple sclerosis [Fatal]
  - Disability [Fatal]
